FAERS Safety Report 9204104 (Version 2)
Quarter: 2013Q2

REPORT INFORMATION
  Report Type: Spontaneous
  Country: IT (occurrence: IT)
  Receive Date: 20130402
  Receipt Date: 20130409
  Transmission Date: 20140414
  Serious: Yes (Hospitalization)
  Sender: FDA-Public Use
  Company Number: IT-PFIZER INC-2013101220

PATIENT
  Age: 40 Year
  Sex: Female

DRUGS (4)
  1. ZOLOFT [Suspect]
     Dosage: 15 DF (50 MG), SINGLE
     Route: 048
     Dates: start: 20130202, end: 20130202
  2. MEDROL [Suspect]
     Dosage: 7 DF (4 MG), SINGLE
     Route: 048
     Dates: start: 20130202, end: 20130202
  3. LASIX [Suspect]
     Dosage: 25 MG, SINGLE
     Route: 048
     Dates: start: 20130202, end: 20130202
  4. LIBRIUM [Suspect]
     Indication: INTENTIONAL SELF-INJURY
     Dosage: 10 MG, SINGLE
     Route: 048
     Dates: start: 20130202, end: 20130202

REACTIONS (4)
  - Intentional overdose [Unknown]
  - Intentional self-injury [Unknown]
  - Alcohol poisoning [Unknown]
  - Confusional state [Unknown]
